FAERS Safety Report 8027112-8 (Version None)
Quarter: 2012Q1

REPORT INFORMATION
  Report Type: 
  Country: None (occurrence: None)
  Receive Date: 20120106
  Receipt Date: 20111228
  Transmission Date: 20120608
  Serious: Yes (Other)
  Sender: FDA-Public Use
  Company Number: PHFR2011GB006950

PATIENT
  Sex: Male

DRUGS (1)
  1. CLOZARIL [Suspect]
     Indication: SCHIZOPHRENIA
     Dosage: 500 MG
     Route: 048

REACTIONS (6)
  - HEPATITIS C [None]
  - LETHARGY [None]
  - FATIGUE [None]
  - PLATELET COUNT DECREASED [None]
  - NAUSEA [None]
  - HAEMOGLOBIN DECREASED [None]
